FAERS Safety Report 8172471-9 (Version None)
Quarter: 2012Q1

REPORT INFORMATION
  Report Type: 
  Country: None (occurrence: None)
  Receive Date: 20120227
  Receipt Date: 20120227
  Transmission Date: 20120608
  Serious: Yes (Hospitalization)
  Sender: FDA-Public Use
  Company Number: None

PATIENT
  Age: 68 Year
  Sex: Male
  Weight: 57.8 kg

DRUGS (1)
  1. CIPROFLOXACIN [Suspect]
     Indication: TUBULOINTERSTITIAL NEPHRITIS
     Dosage: 500 MG BID PO
     Route: 048
     Dates: start: 20111018, end: 20111111

REACTIONS (1)
  - NEPHRITIS [None]
